FAERS Safety Report 7002707-9 (Version None)
Quarter: 2010Q3

REPORT INFORMATION
  Report Type: 
  Country: None (occurrence: None)
  Receive Date: 20100920
  Receipt Date: 20100911
  Transmission Date: 20110219
  Serious: Yes (Other)
  Sender: FDA-Public Use
  Company Number: US-PFIZER INC-2010114889

PATIENT
  Sex: Female
  Weight: 90.703 kg

DRUGS (11)
  1. CHANTIX [Suspect]
     Indication: SMOKING CESSATION THERAPY
     Dosage: UNK
     Dates: start: 20100301, end: 20100501
  2. LIPITOR [Suspect]
     Dosage: UNK
     Dates: end: 20100501
  3. ACETYLSALICYLIC ACID [Concomitant]
     Dosage: 325 MG, UNK
  4. TRAZODONE [Concomitant]
     Dosage: 100 MG, UNK
  5. TOPROL-XL [Concomitant]
     Dosage: 200 MG, UNK
  6. NORVASC [Concomitant]
     Dosage: 5 MG, UNK
  7. SYNTHROID [Concomitant]
     Dosage: 0.05 MG, UNK
  8. PRILOSEC [Concomitant]
     Dosage: 20 MG, UNK
  9. PLAVIX [Concomitant]
     Dosage: 75 MG, UNK
  10. SPIRIVA [Concomitant]
     Indication: CHRONIC OBSTRUCTIVE PULMONARY DISEASE
     Dosage: UNK
  11. LEXAPRO [Concomitant]
     Indication: DEPRESSION
     Dosage: 10 MG, 1X/DAY

REACTIONS (1)
  - HEPATIC ENZYME INCREASED [None]
